FAERS Safety Report 22215659 (Version 2)
Quarter: 2023Q2

REPORT INFORMATION
  Report Type: Report from Study
  Country: EG (occurrence: EG)
  Receive Date: 20230416
  Receipt Date: 20230612
  Transmission Date: 20230722
  Serious: Yes (Hospitalization)
  Sender: FDA-Public Use
  Company Number: EG-002147023-NVSC2023EG084885

PATIENT
  Age: 43 Year
  Sex: Female

DRUGS (5)
  1. KISQALI [Suspect]
     Active Substance: RIBOCICLIB
     Indication: Breast cancer metastatic
     Dosage: 200 MG, TID (21 DAYS AND 1 WEEK OFF)
     Route: 048
     Dates: start: 20220921
  2. GOSERELIN [Concomitant]
     Active Substance: GOSERELIN
     Indication: Neoplasm
     Dosage: UNK
     Route: 065
     Dates: start: 20220921
  3. GOSERELIN [Concomitant]
     Active Substance: GOSERELIN
     Indication: Osteoporosis
  4. AROMASIN [Concomitant]
     Active Substance: EXEMESTANE
     Indication: Neoplasm
     Dosage: UNK UNK, QD
     Route: 065
     Dates: start: 20220921
  5. AROMASIN [Concomitant]
     Active Substance: EXEMESTANE
     Indication: Osteoporosis

REACTIONS (19)
  - Decreased immune responsiveness [Recovered/Resolved]
  - Weight decreased [Recovered/Resolved]
  - Inflammation [Recovered/Resolved]
  - Pallor [Recovered/Resolved]
  - Hypotension [Recovered/Resolved]
  - Decreased immune responsiveness [Recovered/Resolved]
  - Weight decreased [Recovered/Resolved]
  - Inflammation [Recovered/Resolved]
  - Pallor [Recovered/Resolved]
  - Hypotension [Recovered/Resolved]
  - Anaemia [Recovered/Resolved]
  - Anaemia [Recovered/Resolved]
  - Fatigue [Recovered/Resolved]
  - Fatigue [Recovered/Resolved]
  - Hot flush [Recovered/Resolved]
  - Body temperature increased [Recovered/Resolved]
  - Nasopharyngitis [Recovered/Resolved]
  - Rash [Recovered/Resolved]
  - Diarrhoea [Recovered/Resolved]

NARRATIVE: CASE EVENT DATE: 20220901
